FAERS Safety Report 23822191 (Version 1)
Quarter: 2024Q2

REPORT INFORMATION
  Report Type: Spontaneous
  Country: US (occurrence: US)
  Receive Date: 20240506
  Receipt Date: 20240506
  Transmission Date: 20240717
  Serious: No
  Sender: FDA-Public Use
  Company Number: US-BIOGEN-2024BI01263295

PATIENT
  Age: 50 Year
  Sex: Female

DRUGS (2)
  1. TYSABRI [Suspect]
     Active Substance: NATALIZUMAB
     Indication: Multiple sclerosis
     Dosage: RECENT INFUSION: 30-APR-2024,  TOTAL INFUSIONS 20
     Route: 050
     Dates: start: 20220713
  2. HYDROXYCHLOROQUINE [Suspect]
     Active Substance: HYDROXYCHLOROQUINE
     Indication: Rheumatoid arthritis
     Route: 050
     Dates: start: 202208

REACTIONS (1)
  - Optic atrophy [Unknown]

NARRATIVE: CASE EVENT DATE: 20240401
